FAERS Safety Report 9709283 (Version 1)
Quarter: 2013Q4

REPORT INFORMATION
  Report Type: Report from Study
  Country: GB (occurrence: GB)
  Receive Date: 20131125
  Receipt Date: 20131125
  Transmission Date: 20140711
  Serious: Yes (Other)
  Sender: FDA-Public Use
  Company Number: GB-ABBVIE-13P-167-1170264-00

PATIENT
  Sex: Female

DRUGS (2)
  1. HUMIRA [Suspect]
     Indication: RHEUMATOID ARTHRITIS
     Dosage: 2 WEEKLY
     Dates: start: 20130821
  2. HUMIRA [Suspect]
     Dosage: 2 WEEKLY

REACTIONS (3)
  - Local swelling [Recovering/Resolving]
  - Joint swelling [Recovering/Resolving]
  - Knee operation [Recovering/Resolving]
